FAERS Safety Report 12274405 (Version 1)
Quarter: 2016Q2

REPORT INFORMATION
  Report Type: Spontaneous
  Country: US (occurrence: US)
  Receive Date: 20160415
  Receipt Date: 20160415
  Transmission Date: 20160815
  Serious: No
  Sender: FDA-Public Use
  Company Number: US-ALLERGAN-1512876US

PATIENT
  Sex: Female

DRUGS (13)
  1. VITAMIN K [Concomitant]
     Active Substance: PHYTONADIONE
  2. VITAMIN D3 [Concomitant]
     Active Substance: CHOLECALCIFEROL
  3. TURMERIC                           /01079602/ [Concomitant]
     Active Substance: TURMERIC
  4. LATISSE [Suspect]
     Active Substance: BIMATOPROST
     Indication: GROWTH OF EYELASHES
     Dosage: 2 GTT, QHS
     Route: 003
     Dates: start: 201505, end: 201506
  5. PROGESTERONE. [Concomitant]
     Active Substance: PROGESTERONE
  6. VITAMIN D                          /00107901/ [Concomitant]
     Active Substance: ERGOCALCIFEROL
  7. BIOTIN [Concomitant]
     Active Substance: BIOTIN
  8. SPIRULINA                          /01514001/ [Concomitant]
     Active Substance: SPIRULINA
  9. LEVOTHYROXINE. [Concomitant]
     Active Substance: LEVOTHYROXINE
     Indication: THYROID DISORDER
     Dosage: UNK
  10. CALCIUM [Concomitant]
     Active Substance: CALCIUM
  11. SYNTHROID [Concomitant]
     Active Substance: LEVOTHYROXINE SODIUM
     Indication: THYROID DISORDER
     Dosage: UNK
  12. ZINC [Concomitant]
     Active Substance: ZINC\ZINC CHLORIDE
  13. ESTRADIOL. [Concomitant]
     Active Substance: ESTRADIOL

REACTIONS (3)
  - Eyelid sensory disorder [Unknown]
  - Drug ineffective [Unknown]
  - Asthenopia [Not Recovered/Not Resolved]

NARRATIVE: CASE EVENT DATE: 2015
